FAERS Safety Report 17237467 (Version 1)
Quarter: 2020Q1

REPORT INFORMATION
  Report Type: Spontaneous
  Country: US (occurrence: US)
  Receive Date: 20200106
  Receipt Date: 20200106
  Transmission Date: 20200409
  Serious: Yes (Other)
  Sender: FDA-Public Use
  Company Number: US-AMGEN-USASP2019217324

PATIENT
  Age: 65 Year
  Sex: Female

DRUGS (2)
  1. DOXYCLINE [DOXYCYCLINE] [Suspect]
     Active Substance: DOXYCYCLINE
     Indication: OSTEONECROSIS OF JAW
     Route: 065
  2. PROLIA [Suspect]
     Active Substance: DENOSUMAB
     Indication: OSTEOPOROSIS POSTMENOPAUSAL
     Dosage: UNK
     Route: 065
     Dates: start: 2018

REACTIONS (5)
  - Dry mouth [Unknown]
  - Tooth discolouration [Unknown]
  - Tooth fracture [Unknown]
  - Osteonecrosis of jaw [Recovering/Resolving]
  - Dental caries [Unknown]

NARRATIVE: CASE EVENT DATE: 2019
